FAERS Safety Report 18318468 (Version 1)
Quarter: 2020Q3

REPORT INFORMATION
  Report Type: Spontaneous
  Country: CO (occurrence: CO)
  Receive Date: 20200928
  Receipt Date: 20200928
  Transmission Date: 20201103
  Serious: Yes (Hospitalization)
  Sender: FDA-Public Use
  Company Number: CO-SA-2020SA243413

PATIENT

DRUGS (1)
  1. LARONIDASE [Suspect]
     Active Substance: LARONIDASE
     Indication: MUCOPOLYSACCHARIDOSIS I
     Dosage: 5.8 MG, Q15D
     Route: 041

REACTIONS (2)
  - Hypertension [Unknown]
  - Product use issue [Unknown]

NARRATIVE: CASE EVENT DATE: 2020
